FAERS Safety Report 4498943-6 (Version None)
Quarter: 2004Q4

REPORT INFORMATION
  Report Type: 
  Country: None (occurrence: None)
  Receive Date: 20041108
  Receipt Date: 20041027
  Transmission Date: 20050328
  Serious: Yes (Other)
  Sender: FDA-Public Use
  Company Number: 2004085913

PATIENT
  Sex: Female

DRUGS (3)
  1. NEURONTIN [Suspect]
     Indication: ILL-DEFINED DISORDER
     Dosage: 1600 MG (800 MG, 2 IN 1 D)
  2. ANTIHYPERTENSIVES (ANTIHYPERTENSIVES) [Concomitant]
  3. CELECOXIB (CELECOXIB) [Concomitant]

REACTIONS (3)
  - FEELING JITTERY [None]
  - IRRITABILITY [None]
  - TREATMENT NONCOMPLIANCE [None]
